FAERS Safety Report 4899584-9 (Version None)
Quarter: 2006Q1

REPORT INFORMATION
  Report Type: 
  Country: None (occurrence: None)
  Receive Date: 20060123
  Receipt Date: 20050615
  Transmission Date: 20060701
  Serious: Yes (Other)
  Sender: FDA-Public Use
  Company Number: PERC20050029

PATIENT
  Age: 17 Year
  Sex: Male

DRUGS (3)
  1. PERCOCET [Suspect]
     Dates: start: 20050505, end: 20050505
  2. LEXAPRO [Suspect]
     Indication: ANXIETY
     Dosage: 10 MG DAILY PO
     Route: 048
     Dates: start: 20050301, end: 20050504
  3. MARIJUANA [Suspect]

REACTIONS (3)
  - AGGRESSION [None]
  - DRUG ABUSER [None]
  - EMOTIONAL DISORDER [None]
